FAERS Safety Report 6640694-3 (Version None)
Quarter: 2010Q1

REPORT INFORMATION
  Report Type: 
  Country: None (occurrence: None)
  Receive Date: 20100318
  Receipt Date: 20100305
  Transmission Date: 20100710
  Serious: Yes (Hospitalization, Other)
  Sender: FDA-Public Use
  Company Number: US-ELI_LILLY_AND_COMPANY-US200910004062

PATIENT
  Sex: Male
  Weight: 181.41 kg

DRUGS (4)
  1. BYETTA [Suspect]
     Dosage: 10 UG, 2/D
     Dates: start: 20090114, end: 20090225
  2. GLUCOPHAGE [Concomitant]
     Dosage: 1000 MG, 2/D
     Route: 048
     Dates: end: 20090101
  3. LOVASTATIN [Concomitant]
  4. LISINOPRIL [Concomitant]
     Dosage: 20 MG, 2/D
     Route: 048
     Dates: end: 20090101

REACTIONS (5)
  - CALCULUS URINARY [None]
  - HYDRONEPHROSIS [None]
  - PANCREATITIS ACUTE [None]
  - RENAL FAILURE ACUTE [None]
  - URINARY TRACT OBSTRUCTION [None]
